FAERS Safety Report 8746129 (Version 2)
Quarter: 2012Q4

REPORT INFORMATION
  Report Type: 
  Country: AU (occurrence: AU)
  Receive Date: 20120827
  Receipt Date: 20121019
  Transmission Date: 20130627
  Serious: Yes (Other)
  Sender: FDA-Public Use
  Company Number: PHHY2012AU073126

PATIENT
  Age: 54 None
  Sex: Female

DRUGS (5)
  1. ACLASTA [Suspect]
     Indication: OSTEOPOROSIS
     Route: 042
     Dates: start: 20120621
  2. TEGRETOL [Concomitant]
     Dosage: 2 g/day
     Route: 048
  3. LIPITOR [Concomitant]
     Indication: HYPERCHOLESTEROLAEMIA
     Dosage: 20 mg/day
     Route: 048
     Dates: end: 201209
  4. MELOXICAM [Concomitant]
     Dosage: 15 mg/day
     Route: 048
  5. VITAMIN D [Concomitant]
     Dosage: UNK UKN, UNK
     Route: 048

REACTIONS (3)
  - Ischaemic stroke [Unknown]
  - Abasia [Recovering/Resolving]
  - Muscle spasms [Recovering/Resolving]
